FAERS Safety Report 8974478 (Version 2)
Quarter: 2013Q1

REPORT INFORMATION
  Report Type: Report from Study
  Country: JP (occurrence: JP)
  Receive Date: 20121220
  Receipt Date: 20130204
  Transmission Date: 20140127
  Serious: Yes (Hospitalization)
  Sender: FDA-Public Use
  Company Number: JP-ABBOTT-12P-087-1022243-00

PATIENT
  Age: 75 Year
  Sex: Male

DRUGS (4)
  1. LIPACREON [Suspect]
     Indication: PANCREATIC INSUFFICIENCY
     Route: 048
     Dates: start: 20120130
  2. SODIUM RABEPRAZOLE [Concomitant]
     Indication: PANCREATIC INSUFFICIENCY
     Route: 048
  3. POLAPREZINC [Concomitant]
     Indication: PANCREATIC INSUFFICIENCY
     Route: 048
     Dates: start: 20051130
  4. TEPRENONE [Concomitant]
     Indication: PROPHYLAXIS AGAINST GASTROINTESTINAL ULCER
     Route: 048
     Dates: start: 20081224, end: 20120806

REACTIONS (1)
  - Cholangitis acute [Recovered/Resolved]
